FAERS Safety Report 6013692-0 (Version None)
Quarter: 2008Q4

REPORT INFORMATION
  Report Type: 
  Country: None (occurrence: None)
  Receive Date: 20081219
  Receipt Date: 20081212
  Transmission Date: 20090506
  Serious: Yes (Hospitalization)
  Sender: FDA-Public Use
  Company Number: A0742043A

PATIENT
  Age: 71 Year
  Sex: Male
  Weight: 135.5 kg

DRUGS (5)
  1. AVANDIA [Suspect]
     Dosage: 4MG PER DAY
     Route: 048
     Dates: start: 20041012, end: 20070601
  2. METFORMIN HCL [Concomitant]
  3. AMARYL [Concomitant]
  4. TRIAMTERENE [Concomitant]
  5. LOTREL [Concomitant]

REACTIONS (5)
  - ATRIAL FIBRILLATION [None]
  - ATRIOVENTRICULAR BLOCK COMPLETE [None]
  - ATRIOVENTRICULAR BLOCK FIRST DEGREE [None]
  - CARDIAC FAILURE [None]
  - MYOCARDIAL INFARCTION [None]
